FAERS Safety Report 20752989 (Version 1)
Quarter: 2022Q2

REPORT INFORMATION
  Report Type: Spontaneous
  Country: US (occurrence: None)
  Receive Date: 20220426
  Receipt Date: 20220426
  Transmission Date: 20220721
  Serious: No
  Sender: FDA-Public Use
  Company Number: US-ROCHE-2959449

PATIENT
  Sex: Female

DRUGS (1)
  1. ESBRIET [Suspect]
     Active Substance: PIRFENIDONE
     Indication: Idiopathic pulmonary fibrosis
     Dosage: TAKE ONE TAB THRICE A DAY WEEK 1, 2 TAB THRICE A DAY WEEK2, 3 TAB THRICE A DAY THEREAFTER.
     Route: 048
     Dates: start: 20211015

REACTIONS (1)
  - Abdominal discomfort [Recovered/Resolved]
